FAERS Safety Report 6088981-4 (Version None)
Quarter: 2009Q1

REPORT INFORMATION
  Report Type: 
  Country: None (occurrence: None)
  Receive Date: 20090220
  Receipt Date: 20090220
  Transmission Date: 20090719
  Serious: Yes (Life-Threatening)
  Sender: FDA-Public Use
  Company Number: None

PATIENT
  Age: 59 Year
  Sex: Female

DRUGS (3)
  1. VENTOLIN HFA [Suspect]
     Indication: ASTHMA
     Dosage: INHALE 1 PUFF EVERY 4 HOURS AS NEEDED
     Route: 055
     Dates: start: 20090129, end: 20090204
  2. ADVAIR HFA [Concomitant]
  3. FLUTICASONE PROPIONATE [Concomitant]

REACTIONS (4)
  - COUGH [None]
  - DEVICE FAILURE [None]
  - PRODUCT QUALITY ISSUE [None]
  - WHEEZING [None]
